FAERS Safety Report 11807762 (Version 1)
Quarter: 2015Q4

REPORT INFORMATION
  Report Type: Spontaneous
  Country: US (occurrence: US)
  Receive Date: 20151207
  Receipt Date: 20151207
  Transmission Date: 20160305
  Serious: No
  Sender: FDA-Public Use
  Company Number: US-BAYER-2015-483232

PATIENT
  Sex: Male

DRUGS (3)
  1. MIRALAX [Suspect]
     Active Substance: POLYETHYLENE GLYCOL 3350
     Indication: CONSTIPATION
     Dosage: 2 DF, QD
  2. OXYCODONE [Concomitant]
     Active Substance: OXYCODONE
  3. ENEMA [PHOSPHORIC ACID SODIUM] [Concomitant]
     Dosage: 8

REACTIONS (1)
  - Product use issue [None]
